FAERS Safety Report 9931595 (Version 2)
Quarter: 2014Q1

REPORT INFORMATION
  Report Type: Report from Study
  Country: US (occurrence: US)
  Receive Date: 20140228
  Receipt Date: 20140306
  Transmission Date: 20141002
  Serious: Yes (Hospitalization)
  Sender: FDA-Public Use
  Company Number: US-ROCHE-1354272

PATIENT
  Age: 65 Year
  Sex: Female

DRUGS (3)
  1. LUCENTIS [Suspect]
     Indication: RETINAL OEDEMA
     Dosage: RIGHT EYE
     Route: 065
  2. PREDNISONE [Concomitant]
  3. INSULIN [Concomitant]

REACTIONS (1)
  - Back pain [Unknown]
